FAERS Safety Report 24216903 (Version 1)
Quarter: 2024Q3

REPORT INFORMATION
  Report Type: Spontaneous
  Country: GB (occurrence: GB)
  Receive Date: 20240816
  Receipt Date: 20240816
  Transmission Date: 20241017
  Serious: Yes (Other)
  Sender: MYLAN
  Company Number: GB-MYLANLABS-2024M1074946

PATIENT
  Sex: Male

DRUGS (8)
  1. TERBINAFINE [Suspect]
     Active Substance: TERBINAFINE
     Indication: Dermatophytosis
     Dosage: UNK
     Route: 048
  2. CLOTRIMAZOLE [Suspect]
     Active Substance: CLOTRIMAZOLE
     Indication: Dermatophytosis
     Dosage: UNK
     Route: 061
  3. CYCLOSPORINE [Suspect]
     Active Substance: CYCLOSPORINE
     Indication: Dermatophytosis
     Dosage: 2.5 MILLIGRAM/KILOGRAM, QD
     Route: 065
  4. CLOBETASOL PROPIONATE [Suspect]
     Active Substance: CLOBETASOL PROPIONATE
     Indication: Dermatophytosis
     Dosage: UNK
     Route: 065
  5. GENTAMICIN [Suspect]
     Active Substance: GENTAMICIN
     Indication: Dermatophytosis
     Dosage: UNK
     Route: 061
  6. NEOMYCIN [Suspect]
     Active Substance: NEOMYCIN
     Indication: Dermatophytosis
     Dosage: UNK
     Route: 061
  7. MICONAZOLE [Suspect]
     Active Substance: MICONAZOLE\MICONAZOLE NITRATE
     Indication: Dermatophytosis
     Dosage: UNK
     Route: 061
  8. PREDNISOLONE [Suspect]
     Active Substance: PREDNISOLONE
     Indication: Dermatophytosis
     Dosage: REDUCING DOSE
     Route: 065

REACTIONS (2)
  - Drug ineffective [Unknown]
  - Off label use [Unknown]
